FAERS Safety Report 5156960-7 (Version None)
Quarter: 2006Q4

REPORT INFORMATION
  Report Type: 
  Country: None (occurrence: None)
  Receive Date: 20061124
  Receipt Date: 20061109
  Transmission Date: 20070319
  Serious: Yes (Hospitalization, Disabling)
  Sender: FDA-Public Use
  Company Number: US-ROCHE-470904

PATIENT
  Age: 33 Year
  Sex: Male
  Weight: 92.5 kg

DRUGS (2)
  1. ACCUTANE [Suspect]
     Dosage: TAKEN FOR TWO CYCLES.
     Route: 065
     Dates: start: 19821229
  2. DRYSOL [Concomitant]
     Dosage: GENERIC REPORTED AS LUMINIUM CHLORIDE HEXAHYDRATE. DOSAGE REGIMEN: DAILY.
     Route: 061

REACTIONS (32)
  - ABDOMINAL HERNIA [None]
  - ACUTE STRESS DISORDER [None]
  - ANHEDONIA [None]
  - ANXIETY [None]
  - APPENDIX DISORDER [None]
  - BACK INJURY [None]
  - BLOOD CULTURE POSITIVE [None]
  - BLOOD TRIGLYCERIDES INCREASED [None]
  - COLITIS ULCERATIVE [None]
  - DEPRESSED MOOD [None]
  - DRUG INEFFECTIVE [None]
  - GASTRIC HAEMORRHAGE [None]
  - GASTRIC PERFORATION [None]
  - GASTRIC ULCER [None]
  - GASTROOESOPHAGEAL REFLUX DISEASE [None]
  - HEADACHE [None]
  - HYPERTENSION [None]
  - IMPULSIVE BEHAVIOUR [None]
  - INCISIONAL HERNIA [None]
  - INFLAMMATORY BOWEL DISEASE [None]
  - INTESTINAL POLYP [None]
  - JOINT CREPITATION [None]
  - KLEBSIELLA INFECTION [None]
  - MEGACOLON [None]
  - NECK PAIN [None]
  - OBSESSIVE-COMPULSIVE DISORDER [None]
  - OPERATIVE HAEMORRHAGE [None]
  - PANIC ATTACK [None]
  - PSYCHOMOTOR HYPERACTIVITY [None]
  - SLEEP APNOEA SYNDROME [None]
  - STRESS [None]
  - WEIGHT DECREASED [None]
